FAERS Safety Report 8802928 (Version 3)
Quarter: 2014Q2

REPORT INFORMATION
  Report Type: Spontaneous
  Country: US (occurrence: US)
  Receive Date: 20120924
  Receipt Date: 20140502
  Transmission Date: 20141212
  Serious: Yes (Hospitalization)
  Sender: FDA-Public Use
  Company Number: US-B.I. PHARMACEUTICALS,INC./RIDGEFIELD-2012-BP-22768BP

PATIENT
  Age: 65 Year
  Sex: Male
  Weight: 91 kg

DRUGS (11)
  1. PRADAXA [Suspect]
     Indication: ATRIAL FIBRILLATION
     Dosage: 300 MG
     Route: 065
     Dates: start: 20101209, end: 20101214
  2. AMIODARONE [Concomitant]
     Dosage: 200 MG
     Route: 065
     Dates: start: 2008
  3. NORVASC [Concomitant]
     Dosage: 5 MG
     Route: 065
     Dates: start: 2008
  4. ISORDIL [Concomitant]
     Dosage: 60 MG
     Route: 065
     Dates: start: 2008
  5. LASIX [Concomitant]
     Dosage: 200 MG
     Route: 065
     Dates: start: 2008
  6. ECOTRIN [Concomitant]
     Dosage: 81 MG
     Route: 065
     Dates: start: 2008
  7. PEPCID [Concomitant]
     Route: 065
     Dates: start: 2008
  8. NITROGLYCERIN [Concomitant]
     Route: 065
     Dates: start: 2008
  9. LIPITOR [Concomitant]
     Route: 065
  10. ACYCLOVIR [Concomitant]
     Route: 065
  11. FLONASE [Concomitant]
     Route: 065

REACTIONS (4)
  - Pulmonary haemorrhage [Unknown]
  - Acute respiratory failure [Unknown]
  - Haemoptysis [Unknown]
  - Pulmonary oedema [Unknown]
